FAERS Safety Report 22633021 (Version 1)
Quarter: 2023Q2

REPORT INFORMATION
  Report Type: Spontaneous
  Country: US (occurrence: US)
  Receive Date: 20230623
  Receipt Date: 20230623
  Transmission Date: 20230721
  Serious: Yes (Hospitalization)
  Sender: FDA-Public Use
  Company Number: US-CADILA HEALTHCARE LIMITED-US-ZYDUS-094468

PATIENT

DRUGS (5)
  1. CARVEDILOL [Interacting]
     Active Substance: CARVEDILOL
     Indication: Hypertension
     Dosage: UNK UNK, QD,  EVERY MORNING
     Route: 065
  2. NIFEDIPINE [Interacting]
     Active Substance: NIFEDIPINE
     Indication: Hypertension
     Dosage: UNK, EVERY MORNING
     Route: 065
  3. CANDESARTAN [Interacting]
     Active Substance: CANDESARTAN
     Indication: Hypertension
     Dosage: UNK
     Route: 065
  4. KAYEXALATE [Interacting]
     Active Substance: SODIUM POLYSTYRENE SULFONATE
     Indication: Hyperkalaemia
     Dosage: UNK
     Route: 065
  5. HYDRALAZINE [Suspect]
     Active Substance: HYDRALAZINE HYDROCHLORIDE
     Indication: Hypertension
     Dosage: UNK
     Route: 065

REACTIONS (2)
  - Drug interaction [Unknown]
  - Accelerated hypertension [Unknown]
